FAERS Safety Report 4587335-7 (Version None)
Quarter: 2005Q1

REPORT INFORMATION
  Report Type: 
  Country: None (occurrence: None)
  Receive Date: 20050215
  Receipt Date: 20050202
  Transmission Date: 20050727
  Serious: Yes (Hospitalization)
  Sender: FDA-Public Use
  Company Number: 2005025436

PATIENT
  Age: 77 Year
  Sex: Female

DRUGS (5)
  1. CELEBREX [Suspect]
     Indication: BURSITIS
     Dosage: ORAL
     Route: 048
  2. LIPITOR [Concomitant]
  3. ALDACTAZIDE A (HYDROCHLOROTHIAZIDE, SPIRONOLACTONE) [Concomitant]
  4. FLUTICASONE PROPIONATE [Concomitant]
  5. ALL OTHER THERAPEUTIC PRODUCTS (ALL OTHER THERAPEUTIC PRODUCTS) [Concomitant]

REACTIONS (5)
  - APHONIA [None]
  - ASTHMA [None]
  - CHRONIC OBSTRUCTIVE PULMONARY DISEASE [None]
  - DRUG INEFFECTIVE [None]
  - FATIGUE [None]
